FAERS Safety Report 5491283-8 (Version None)
Quarter: 2007Q4

REPORT INFORMATION
  Report Type: 
  Country: None (occurrence: None)
  Receive Date: 20071017
  Receipt Date: 20071008
  Transmission Date: 20080405
  Serious: Yes (Death, Hospitalization)
  Sender: FDA-Public Use
  Company Number: IL-JNJFOC-20070903200

PATIENT
  Age: 73 Year
  Sex: Female
  Weight: 62 kg

DRUGS (4)
  1. DECITABINE (DECITABINE) LYOPHILIZED POWDER [Suspect]
     Indication: MYELODYSPLASTIC SYNDROME
     Dosage: INTRAVENOUS; 30 MG, INTRAVENOUS
     Route: 042
     Dates: start: 20070827, end: 20070831
  2. DECITABINE (DECITABINE) LYOPHILIZED POWDER [Suspect]
     Indication: MYELODYSPLASTIC SYNDROME
     Dosage: INTRAVENOUS; 30 MG, INTRAVENOUS
     Route: 042
     Dates: start: 20070727
  3. GLUCOPHAGE (METFORMIN HYDROCHLORIDE) UNSPECIFIED [Concomitant]
  4. ARIMIDEX (ANASTROZOLE) UNSPECIFIED [Concomitant]

REACTIONS (9)
  - ABDOMINAL PAIN UPPER [None]
  - DIARRHOEA [None]
  - DISEASE PROGRESSION [None]
  - FEBRILE NEUTROPENIA [None]
  - LUNG INFECTION [None]
  - MYELODYSPLASTIC SYNDROME [None]
  - PNEUMONIA [None]
  - RESPIRATORY FAILURE [None]
  - SEPSIS [None]
